FAERS Safety Report 4358576-9 (Version None)
Quarter: 2004Q2

REPORT INFORMATION
  Report Type: 
  Country: None (occurrence: None)
  Receive Date: 20040514
  Receipt Date: 20040507
  Transmission Date: 20050107
  Serious: Yes (Other)
  Sender: FDA-Public Use
  Company Number: JP-MERCK-0405USA00649

PATIENT
  Age: 38 Year
  Sex: Male

DRUGS (6)
  1. CRIXIVAN [Suspect]
     Indication: HIV INFECTION
     Route: 048
     Dates: start: 19990401, end: 19990101
  2. CRIXIVAN [Suspect]
     Route: 048
     Dates: start: 19990101
  3. LAMIVUDINE [Suspect]
     Indication: HIV INFECTION
     Route: 048
     Dates: start: 19990401, end: 19990101
  4. LAMIVUDINE [Suspect]
     Route: 048
     Dates: start: 19990101
  5. STAVUDINE [Suspect]
     Indication: HIV INFECTION
     Route: 048
     Dates: start: 19990401, end: 19990101
  6. STAVUDINE [Suspect]
     Route: 048
     Dates: start: 19990101

REACTIONS (5)
  - DISEASE RECURRENCE [None]
  - IMMUNE RECONSTITUTION SYNDROME [None]
  - OXYGEN SATURATION DECREASED [None]
  - PNEUMOCYSTIS CARINII PNEUMONIA [None]
  - RESPIRATORY RATE INCREASED [None]
